FAERS Safety Report 15743484 (Version 1)
Quarter: 2018Q4

REPORT INFORMATION
  Report Type: Spontaneous
  Country: IT (occurrence: IT)
  Receive Date: 20181220
  Receipt Date: 20181220
  Transmission Date: 20190205
  Serious: Yes (Other)
  Sender: FDA-Public Use
  Company Number: IT-TEVA-2018-IT-989372

PATIENT
  Age: 74 Year
  Sex: Female
  Weight: 59 kg

DRUGS (6)
  1. CARBOPLATINO TEVA [Concomitant]
     Active Substance: CARBOPLATIN
     Indication: CERVIX CARCINOMA
     Route: 042
     Dates: start: 20181112, end: 20181112
  2. RANITIDINA S.A.L.F. [Concomitant]
     Indication: ANAPHYLAXIS PROPHYLAXIS
     Route: 042
     Dates: start: 20181112, end: 20181112
  3. TENORETIC [Concomitant]
     Active Substance: ATENOLOL\CHLORTHALIDONE
     Indication: HYPERTENSION
     Route: 048
  4. SOLDESAM [Concomitant]
     Active Substance: DEXAMETHASONE
     Indication: ANAPHYLAXIS PROPHYLAXIS
     Route: 042
     Dates: start: 20181112, end: 20181112
  5. PACLITAXEL TEVA [Suspect]
     Active Substance: PACLITAXEL
     Indication: CERVIX CARCINOMA
     Route: 042
     Dates: start: 20181112, end: 20181112
  6. URBASON SOLUBILE [Concomitant]
     Active Substance: METHYLPREDNISOLONE SODIUM SUCCINATE
     Indication: ANAPHYLAXIS PROPHYLAXIS
     Route: 042

REACTIONS (5)
  - Erythema [Recovered/Resolved]
  - Back pain [Recovered/Resolved]
  - Chest pain [Recovered/Resolved]
  - Infusion related reaction [Recovered/Resolved]
  - Feeling hot [Recovered/Resolved]

NARRATIVE: CASE EVENT DATE: 20181112
